FAERS Safety Report 12754865 (Version 1)
Quarter: 2016Q3

REPORT INFORMATION
  Report Type: Other
  Country: None (occurrence: US)
  Receive Date: 20160916
  Receipt Date: 20160916
  Transmission Date: 20161109
  Serious: Yes (Other)
  Sender: FDA-Public Use
  Company Number: US-GUTHY-RENKER LLC-1057393

PATIENT
  Age: 68 Year
  Sex: Female

DRUGS (3)
  1. IT COSMETICS BYE BYE FOUNDATION W/SPF 50+ [Suspect]
     Active Substance: TITANIUM DIOXIDE\ZINC OXIDE
     Indication: PROPHYLAXIS AGAINST SOLAR RADIATION
     Route: 061
     Dates: start: 20160901
  2. PLAQUENIL, SYNTHROID, VITAMIN D, CALCIUM AND OTHERS [Concomitant]
  3. METFORMIN, XARALTO, SIMVASTATIN, LIPITOR [Concomitant]

REACTIONS (2)
  - Urticaria [Recovering/Resolving]
  - Wrong technique in product usage process [None]

NARRATIVE: CASE EVENT DATE: 20160901
